FAERS Safety Report 7058206-1 (Version None)
Quarter: 2010Q4

REPORT INFORMATION
  Report Type: 
  Country: None (occurrence: None)
  Receive Date: 20101022
  Receipt Date: 20101011
  Transmission Date: 20110411
  Serious: Yes (Hospitalization)
  Sender: FDA-Public Use
  Company Number: US-ELI_LILLY_AND_COMPANY-US201010002227

PATIENT
  Sex: Male

DRUGS (4)
  1. GEMCITABINE HCL [Suspect]
     Indication: PANCREATIC CARCINOMA METASTATIC
     Dosage: 2000 MG, UNKNOWN
     Route: 065
     Dates: start: 20100621
  2. GEMCITABINE HCL [Suspect]
     Dosage: 1600 MG, UNKNOWN
     Dates: start: 20100823
  3. ASPIRIN [Concomitant]
     Route: 048
     Dates: start: 20100616
  4. LEVAQUIN [Concomitant]
     Indication: INFECTION
     Route: 048
     Dates: start: 20100829

REACTIONS (1)
  - PNEUMONIA [None]
